FAERS Safety Report 7561452-1 (Version None)
Quarter: 2011Q2

REPORT INFORMATION
  Report Type: 
  Country: None (occurrence: None)
  Receive Date: 20110621
  Receipt Date: 20101029
  Transmission Date: 20111010
  Serious: No
  Sender: FDA-Public Use
  Company Number: US-ASTRAZENECA-2010SE51499

PATIENT
  Sex: Female

DRUGS (1)
  1. PULMICORT FLEXHALER [Suspect]
     Route: 055
     Dates: start: 20101027

REACTIONS (2)
  - CONDITION AGGRAVATED [None]
  - INCORRECT DOSE ADMINISTERED BY DEVICE [None]
